FAERS Safety Report 24979482 (Version 1)
Quarter: 2025Q1

REPORT INFORMATION
  Report Type: Spontaneous
  Country: US (occurrence: US)
  Receive Date: 20250218
  Receipt Date: 20250218
  Transmission Date: 20250409
  Serious: No
  Sender: ELI LILLY AND COMPANY
  Company Number: US-ELI_LILLY_AND_COMPANY-US202502010473

PATIENT
  Age: 59 Year
  Sex: Female

DRUGS (2)
  1. MOUNJARO [Suspect]
     Active Substance: TIRZEPATIDE
     Indication: Type 2 diabetes mellitus
     Route: 058
     Dates: start: 2024
  2. LEVOTHYROXINE [Concomitant]
     Active Substance: LEVOTHYROXINE
     Indication: Hyperthyroidism
     Route: 065

REACTIONS (3)
  - Product storage error [Unknown]
  - Injection site erythema [Recovered/Resolved]
  - Injection site rash [Recovered/Resolved]
